FAERS Safety Report 4805239-9 (Version None)
Quarter: 2005Q4

REPORT INFORMATION
  Report Type: 
  Country: None (occurrence: None)
  Receive Date: 20051018
  Receipt Date: 20051007
  Transmission Date: 20060501
  Serious: Yes (Other)
  Sender: FDA-Public Use
  Company Number: HQWYE934010OCT05

PATIENT
  Age: 61 Year
  Sex: Male

DRUGS (3)
  1. EFFEXOR XR [Suspect]
     Indication: DEPRESSION
     Route: 048
     Dates: start: 20050511, end: 20050610
  2. AVAPRO [Concomitant]
  3. TAZAC (NIZATIDINE) [Concomitant]

REACTIONS (5)
  - BLINDNESS [None]
  - ORTHOSTATIC HYPOTENSION [None]
  - PHOTOPHOBIA [None]
  - VERTIGO [None]
  - VISUAL DISTURBANCE [None]
